FAERS Safety Report 17190190 (Version 1)
Quarter: 2019Q4

REPORT INFORMATION
  Report Type: Spontaneous
  Country: DE (occurrence: DE)
  Receive Date: 20191223
  Receipt Date: 20191223
  Transmission Date: 20200122
  Serious: Yes (Death, Life-Threatening, Hospitalization)
  Sender: FDA-Public Use
  Company Number: DE-TEVA-2019-DE-1155632

PATIENT
  Age: 40 Year
  Sex: Female
  Weight: 55 kg

DRUGS (4)
  1. CODEINE [Concomitant]
     Active Substance: CODEINE
     Dosage: 20 GGT, IF NECESSARY, DROPS
     Route: 048
  2. IBUPROFEN. [Suspect]
     Active Substance: IBUPROFEN
     Indication: INFECTION
     Dosage: 1200 MILLIGRAM DAILY; 600 MG, 2X/D, ON-DEMAND MEDICATION FOR INFECTION, TABLETS
     Route: 048
  3. WICK MEDINAIT (ACETAMINOPHEN\DEXTROMETHORPHAN HYDROBROMIDE\DOXYLAMINE\EPHEDRINE SULFATE) [Suspect]
     Active Substance: ACETAMINOPHEN\DEXTROMETHORPHAN HYDROBROMIDE\DOXYLAMINE\EPHEDRINE SULFATE
     Indication: INFECTION
     Dosage: NK NK, AT NIGHT, MEDICATION FOR INFECTION, JUICE,  MEDICATION ERROR
     Route: 048
  4. WICK DAYMED (ACETAMINOPHEN\ASCORBIC ACID\GUAIFENESIN\PHENYLEPHRINE) [Suspect]
     Active Substance: ACETAMINOPHEN\ASCORBIC ACID\GUAIFENESIN\PHENYLEPHRINE
     Indication: INFECTION
     Dosage: NK NK, 2X/D, ON-DEMAND MEDICATION FOR INFECTION, JUICE, MEDICATION ERROR
     Route: 048

REACTIONS (3)
  - Jaundice [Unknown]
  - Oedema peripheral [Unknown]
  - Product monitoring error [Unknown]
